FAERS Safety Report 5744881-8 (Version None)
Quarter: 2008Q2

REPORT INFORMATION
  Report Type: 
  Country: None (occurrence: None)
  Receive Date: 20080516
  Receipt Date: 20080505
  Transmission Date: 20081010
  Serious: Yes (Life-Threatening)
  Sender: FDA-Public Use
  Company Number: 6041108

PATIENT
  Sex: Male

DRUGS (11)
  1. CONCOR COR 2,5 MG(2.5MG) (BISOPROLOL FUMARATE) [Suspect]
     Indication: DRUG USE FOR UNKNOWN INDICATION
  2. BELOC ZOK MITE (METOPROLOL SUCCINATE) [Concomitant]
  3. L-THYROXIN (LEVOTHYROXINE) [Concomitant]
  4. OPIPRAMOL (OPIPRAMOL) [Concomitant]
  5. ALPRAZOLAM [Concomitant]
  6. NEOGAMA FORTE (SULPIRIDE) [Concomitant]
  7. PLAVIX [Concomitant]
  8. BIPRETERAX (INDAPAMIDE, PERINDOPRIL ERBUMINE) [Concomitant]
  9. OMEPRAZOLE [Concomitant]
  10. BROMAZANIL (BROMAZEPAM) [Concomitant]
  11. VOLTAREN RETARD (DICLOFENAC) [Concomitant]

REACTIONS (11)
  - AGGRESSION [None]
  - ANXIETY [None]
  - BLOOD PRESSURE DECREASED [None]
  - DEPRESSION SUICIDAL [None]
  - DIZZINESS [None]
  - FATIGUE [None]
  - GAIT DISTURBANCE [None]
  - HEART RATE DECREASED [None]
  - MEMORY IMPAIRMENT [None]
  - MUSCLE SPASMS [None]
  - PERSONALITY CHANGE [None]
